FAERS Safety Report 18133417 (Version 1)
Quarter: 2020Q3

REPORT INFORMATION
  Report Type: Report from Study
  Country: US (occurrence: US)
  Receive Date: 20200811
  Receipt Date: 20200811
  Transmission Date: 20201103
  Serious: Yes (Other)
  Sender: FDA-Public Use
  Company Number: US-BIOGEN-2020BI00906381

PATIENT
  Sex: Female

DRUGS (2)
  1. TECFIDERA [Suspect]
     Active Substance: DIMETHYL FUMARATE
     Indication: MULTIPLE SCLEROSIS
     Dosage: 140 MILLIGRAMS FOR A MONTH (PRESUMED 120)
     Route: 065
     Dates: start: 20180330
  2. TECFIDERA [Suspect]
     Active Substance: DIMETHYL FUMARATE
     Route: 065

REACTIONS (13)
  - Sciatica [Unknown]
  - Radiculopathy [Unknown]
  - Burning sensation [Unknown]
  - Memory impairment [Unknown]
  - Gait inability [Unknown]
  - Prescribed underdose [Unknown]
  - Primary progressive multiple sclerosis [Unknown]
  - Drug ineffective [Unknown]
  - Muscle spasms [Unknown]
  - Cerebrovascular accident [Unknown]
  - Pain [Unknown]
  - Dysstasia [Unknown]
  - Flushing [Recovered/Resolved]
